FAERS Safety Report 24209778 (Version 1)
Quarter: 2024Q3

REPORT INFORMATION
  Report Type: Spontaneous
  Country: US (occurrence: US)
  Receive Date: 20240814
  Receipt Date: 20240814
  Transmission Date: 20241017
  Serious: No
  Sender: PFIZER
  Company Number: US-PFIZER INC-PV202300164639

PATIENT
  Age: 79 Year
  Sex: Female

DRUGS (6)
  1. IBRANCE [Suspect]
     Active Substance: PALBOCICLIB
     Indication: Breast cancer metastatic
     Dosage: 1 TAB EVERY OTHER DAY FOR 21 DAYS THEN 7 OFF
  2. IBRANCE [Suspect]
     Active Substance: PALBOCICLIB
     Dosage: DAILY FOR 21 DAYS
     Route: 048
  3. IBRANCE [Suspect]
     Active Substance: PALBOCICLIB
     Dosage: 50MG (1/2 TAB) DAILY FOR 3 WEEKS AND 1 WEEK OFF
  4. IBRANCE [Suspect]
     Active Substance: PALBOCICLIB
     Dosage: 1 TAB EVERY OTHER DAY FOR 21 DAYS THEN 7 OFF
  5. IBRANCE [Suspect]
     Active Substance: PALBOCICLIB
     Dosage: 100MG TABLET EVERY OTHER DAY FOR THREE WEEKS AND 7 DAYS OFF
  6. ANAGRELIDE [Concomitant]
     Active Substance: ANAGRELIDE
     Dosage: 50 MILLIGRAMS, TWICE A DAY

REACTIONS (6)
  - Red blood cell count decreased [Unknown]
  - White blood cell count decreased [Unknown]
  - Immune system disorder [Unknown]
  - Product prescribing issue [Unknown]
  - Off label use [Unknown]
  - Off label use [Unknown]
